FAERS Safety Report 5120210-8 (Version None)
Quarter: 2006Q4

REPORT INFORMATION
  Report Type: 
  Country: None (occurrence: None)
  Receive Date: 20061002
  Receipt Date: 20061002
  Transmission Date: 20070319
  Serious: Yes (Life-Threatening, Hospitalization, Other)
  Sender: FDA-Public Use
  Company Number: None

PATIENT
  Age: 49 Year
  Sex: Male
  Weight: 65.7716 kg

DRUGS (1)
  1. TYLENOL (CAPLET) [Suspect]
     Indication: HEADACHE
     Dosage: 2
     Dates: start: 20060813, end: 20060815

REACTIONS (1)
  - STEVENS-JOHNSON SYNDROME [None]
